FAERS Safety Report 7557721-1 (Version None)
Quarter: 2011Q2

REPORT INFORMATION
  Report Type: 
  Country: None (occurrence: None)
  Receive Date: 20110620
  Receipt Date: 20110616
  Transmission Date: 20111010
  Serious: Yes (Death, Hospitalization)
  Sender: FDA-Public Use
  Company Number: KE-ABBOTT-11P-089-0726189-00

PATIENT
  Sex: Female

DRUGS (3)
  1. RALTEGRAVIR [Concomitant]
     Indication: PRODUCT USED FOR UNKNOWN INDICATION
     Dates: start: 20110317, end: 20110604
  2. COTRIM [Concomitant]
     Indication: PRODUCT USED FOR UNKNOWN INDICATION
     Dates: start: 20030703, end: 20110604
  3. LOPINAVIR/RITONAVIR [Suspect]
     Indication: HIV INFECTION
     Route: 048
     Dates: start: 20110317, end: 20110604

REACTIONS (12)
  - LIPODYSTROPHY ACQUIRED [None]
  - CANDIDIASIS [None]
  - DIARRHOEA [None]
  - DECUBITUS ULCER [None]
  - VOMITING [None]
  - STOMATITIS [None]
  - OEDEMA PERIPHERAL [None]
  - SKIN DISORDER [None]
  - DECREASED APPETITE [None]
  - DEHYDRATION [None]
  - MUSCULAR WEAKNESS [None]
  - MALAISE [None]
